FAERS Safety Report 10229093 (Version 1)
Quarter: 2014Q2

REPORT INFORMATION
  Report Type: Spontaneous
  Country: GB (occurrence: GB)
  Receive Date: 20140610
  Receipt Date: 20140610
  Transmission Date: 20141212
  Serious: Yes (Death)
  Sender: FDA-Public Use
  Company Number: PHHY2014GB068093

PATIENT
  Age: 50 Year
  Sex: Male
  Weight: 132 kg

DRUGS (10)
  1. AMOXICILLIN [Suspect]
     Indication: TOOTH INFECTION
     Dosage: 500 MG, QID
     Route: 048
     Dates: start: 20140127, end: 20140202
  2. DIPHENHYDRAMINE [Concomitant]
  3. FERROUS FUMARATE [Concomitant]
  4. FORCEVAL [Concomitant]
  5. LACTULOSE [Concomitant]
  6. OMEPRAZOLE [Concomitant]
  7. ORLISTAT [Concomitant]
  8. SILDENAFIL [Concomitant]
  9. SPIRONOLACTONE [Concomitant]
  10. THIAMINE [Concomitant]

REACTIONS (1)
  - Drug-induced liver injury [Fatal]
